FAERS Safety Report 9068975 (Version 1)
Quarter: 2013Q1

REPORT INFORMATION
  Report Type: Spontaneous
  Country: US (occurrence: US)
  Receive Date: 20130128
  Receipt Date: 20130128
  Transmission Date: 20140127
  Serious: Yes (Other)
  Sender: FDA-Public Use
  Company Number: US-PFIZER INC-2013026748

PATIENT
  Age: 74 Year
  Sex: Male
  Weight: 68.03 kg

DRUGS (1)
  1. PREPARATION H [Suspect]
     Indication: HAEMORRHOIDS
     Dosage: UNK

REACTIONS (1)
  - Haemorrhage [Not Recovered/Not Resolved]
